FAERS Safety Report 5963830-0 (Version None)
Quarter: 2008Q4

REPORT INFORMATION
  Report Type: 
  Country: None (occurrence: None)
  Receive Date: 20081124
  Receipt Date: 20081114
  Transmission Date: 20090506
  Serious: Yes (Other)
  Sender: FDA-Public Use
  Company Number: US-TEVA-180929USA

PATIENT

DRUGS (1)
  1. PANTOPRAZOLE SODIUM [Suspect]
     Route: 048

REACTIONS (2)
  - HAEMOPTYSIS [None]
  - NAUSEA [None]
